FAERS Safety Report 9336897 (Version 2)
Quarter: 2013Q3

REPORT INFORMATION
  Report Type: Report from Study
  Country: CA (occurrence: CA)
  Receive Date: 20130607
  Receipt Date: 20130905
  Transmission Date: 20140515
  Serious: Yes (Hospitalization)
  Sender: FDA-Public Use
  Company Number: CA-JNJFOC-20130522480

PATIENT
  Age: 46 Year
  Sex: Female
  Weight: 70.31 kg

DRUGS (4)
  1. REMICADE [Suspect]
     Indication: CROHN^S DISEASE
     Route: 042
     Dates: start: 20090218
  2. AERIUS [Concomitant]
     Route: 048
  3. BENADRYL [Concomitant]
     Route: 042
  4. TYLENOL [Concomitant]
     Route: 048

REACTIONS (3)
  - Genital disorder female [Unknown]
  - Wound [Not Recovered/Not Resolved]
  - Urinary tract infection [Not Recovered/Not Resolved]
